FAERS Safety Report 6179981-4 (Version None)
Quarter: 2009Q2

REPORT INFORMATION
  Report Type: 
  Country: None (occurrence: None)
  Receive Date: 20090505
  Receipt Date: 20090401
  Transmission Date: 20091009
  Serious: No
  Sender: FDA-Public Use
  Company Number: US-ALEXION-A200900271

PATIENT
  Sex: Female

DRUGS (1)
  1. SOLIRIS [Suspect]
     Dosage: UNK
     Route: 042
     Dates: start: 20090325

REACTIONS (3)
  - HAEMOGLOBIN DECREASED [None]
  - HEADACHE [None]
  - MUSCLE SPASMS [None]
